FAERS Safety Report 7829894-4 (Version None)
Quarter: 2011Q4

REPORT INFORMATION
  Report Type: 
  Country: None (occurrence: None)
  Receive Date: 20111021
  Receipt Date: 20111011
  Transmission Date: 20120403
  Serious: Yes (Hospitalization)
  Sender: FDA-Public Use
  Company Number: JP-JNJFOC-20111005568

PATIENT
  Age: 31 Year
  Sex: Male

DRUGS (5)
  1. ASACOL [Concomitant]
     Indication: COLITIS ULCERATIVE
     Route: 048
     Dates: end: 20101031
  2. ADRENOCORTICAL HORMONE [Concomitant]
     Indication: COLITIS ULCERATIVE
  3. REMICADE [Suspect]
     Indication: COLITIS ULCERATIVE
     Route: 042
     Dates: start: 20101018
  4. ALLEGRA [Concomitant]
     Indication: ATOPY
     Dosage: DOSE: 2TAB
     Route: 048
     Dates: end: 20101031
  5. REMICADE [Suspect]
     Dosage: TOTAL NUMBER OF INFUSIONS: 2
     Route: 042
     Dates: start: 20101030

REACTIONS (1)
  - PANCREATITIS ACUTE [None]
